FAERS Safety Report 18808704 (Version 1)
Quarter: 2021Q1

REPORT INFORMATION
  Report Type: Report from Study
  Country: CO (occurrence: CO)
  Receive Date: 20210129
  Receipt Date: 20210129
  Transmission Date: 20210419
  Serious: Yes (Other)
  Sender: FDA-Public Use
  Company Number: CO-EMD SERONO-9214947

PATIENT
  Age: 12 Year
  Sex: Female

DRUGS (1)
  1. SAIZEN [Suspect]
     Active Substance: SOMATROPIN
     Indication: GROWTH DISORDER
     Route: 058
     Dates: start: 20171205

REACTIONS (2)
  - Limb mass [Recovered/Resolved]
  - Procedural pain [Unknown]

NARRATIVE: CASE EVENT DATE: 20200723
